FAERS Safety Report 10238742 (Version 3)
Quarter: 2014Q2

REPORT INFORMATION
  Report Type: Report from Study
  Country: CA (occurrence: CA)
  Receive Date: 20140616
  Receipt Date: 20140624
  Transmission Date: 20141212
  Serious: Yes (Hospitalization)
  Sender: FDA-Public Use
  Company Number: CA-JNJFOC-20140515121

PATIENT
  Age: 25 Year
  Sex: Male
  Weight: 56 kg

DRUGS (4)
  1. REMICADE [Suspect]
     Indication: CROHN^S DISEASE
     Route: 042
     Dates: start: 20130307
  2. REMICADE [Suspect]
     Indication: CROHN^S DISEASE
     Route: 042
     Dates: start: 20140613, end: 20140613
  3. BACTRIM [Concomitant]
     Route: 065
  4. RHUBARB [Concomitant]
     Route: 065

REACTIONS (4)
  - Lower respiratory tract infection [Unknown]
  - Pericarditis [Recovered/Resolved]
  - Pruritus [Recovered/Resolved]
  - Infusion related reaction [Recovered/Resolved]
